FAERS Safety Report 21478904 (Version 2)
Quarter: 2023Q2

REPORT INFORMATION
  Report Type: Report from Study
  Country: CA (occurrence: CA)
  Receive Date: 20221019
  Receipt Date: 20230407
  Transmission Date: 20230722
  Serious: Yes (Other)
  Sender: FDA-Public Use
  Company Number: CA-JNJFOC-20220928313

PATIENT
  Age: 38 Year
  Sex: Male
  Weight: 78.542 kg

DRUGS (2)
  1. SIMPONI [Suspect]
     Active Substance: GOLIMUMAB
     Indication: Ankylosing spondylitis
     Dosage: 50.00 MG /0.50 ML
     Route: 058
     Dates: start: 20210331
  2. SIMPONI [Suspect]
     Active Substance: GOLIMUMAB
     Route: 058

REACTIONS (4)
  - Suicidal ideation [Not Recovered/Not Resolved]
  - Ankylosing spondylitis [Recovering/Resolving]
  - Drug ineffective [Unknown]
  - Off label use [Unknown]
